FAERS Safety Report 25700996 (Version 1)
Quarter: 2025Q3

REPORT INFORMATION
  Report Type: Spontaneous
  Country: US (occurrence: US)
  Receive Date: 20250819
  Receipt Date: 20250819
  Transmission Date: 20251021
  Serious: No
  Sender: SANOFI AVENTIS
  Company Number: US-SANOFI-02624409

PATIENT
  Age: 16 Year
  Sex: Male

DRUGS (1)
  1. DUPIXENT [Suspect]
     Active Substance: DUPILUMAB
     Indication: Eosinophilic oesophagitis
     Dosage: UNK, QW
     Route: 065
     Dates: end: 20250815

REACTIONS (4)
  - Seasonal allergy [Unknown]
  - Condition aggravated [Unknown]
  - Nasal congestion [Unknown]
  - Sinus disorder [Unknown]

NARRATIVE: CASE EVENT DATE: 20250101
